FAERS Safety Report 9529806 (Version 1)
Quarter: 2013Q2

REPORT INFORMATION
  Report Type: Spontaneous
  Country: US (occurrence: None)
  Receive Date: 20130402
  Receipt Date: 20130402
  Transmission Date: 20140414
  Serious: Yes (Hospitalization)
  Sender: FDA-Public Use
  Company Number: RB-48539-2013

PATIENT
  Age: 28 Year
  Sex: Female

DRUGS (2)
  1. SUBOXONE 8 MG [Suspect]
     Indication: DRUG DEPENDENCE
     Dosage: (8 MG, SUBOXONE FILM; VARIOUS TAPERED DOSES TO 8 MG DAILY SUBLINGUAL)
     Dates: end: 2011
  2. OPIOIDS [Suspect]
     Indication: DRUG ABUSE

REACTIONS (2)
  - Intentional overdose [None]
  - Drug abuse [None]
